FAERS Safety Report 23501538 (Version 1)
Quarter: 2024Q1

REPORT INFORMATION
  Report Type: Spontaneous
  Country: US (occurrence: US)
  Receive Date: 20240208
  Receipt Date: 20240208
  Transmission Date: 20240410
  Serious: Yes (Other)
  Sender: FDA-Public Use
  Company Number: -Clarivate-01001927719-PI004640-C1

PATIENT
  Age: 55 Year
  Sex: Female

DRUGS (4)
  1. IPILIMUMAB [Suspect]
     Active Substance: IPILIMUMAB
     Indication: Sclerosing epithelioid fibrosarcoma
     Dates: start: 202305, end: 202306
  2. IPILIMUMAB [Suspect]
     Active Substance: IPILIMUMAB
     Dates: start: 202308
  3. NIVOLUMAB [Suspect]
     Active Substance: NIVOLUMAB
     Indication: Sclerosing epithelioid fibrosarcoma
     Dates: start: 202305, end: 202306
  4. NIVOLUMAB [Suspect]
     Active Substance: NIVOLUMAB
     Dates: start: 202308, end: 202308

REACTIONS (2)
  - Immune-mediated lung disease [Recovered/Resolved]
  - Off label use [Unknown]

NARRATIVE: CASE EVENT DATE: 20230601
